FAERS Safety Report 25995641 (Version 2)
Quarter: 2025Q4

REPORT INFORMATION
  Report Type: Spontaneous
  Country: JP (occurrence: JP)
  Receive Date: 20251104
  Receipt Date: 20251128
  Transmission Date: 20260118
  Serious: Yes (Other)
  Sender: KYOWA
  Company Number: JP-KYOWAKIRIN-2024KK028386

PATIENT

DRUGS (1)
  1. CRYSVITA [Suspect]
     Active Substance: BUROSUMAB-TWZA
     Indication: Hereditary hypophosphataemic rickets
     Dosage: 90 MG, 1X/4 WEEKS
     Route: 058
     Dates: start: 2020

REACTIONS (1)
  - Spinal ligament ossification [Recovered/Resolved]

NARRATIVE: CASE EVENT DATE: 20240801
